FAERS Safety Report 4768131-4 (Version None)
Quarter: 2005Q3

REPORT INFORMATION
  Report Type: 
  Country: None (occurrence: None)
  Receive Date: 20050912
  Receipt Date: 20050912
  Transmission Date: 20060218
  Serious: No
  Sender: FDA-Public Use
  Company Number: None

PATIENT
  Age: 27 Year
  Sex: Male

DRUGS (2)
  1. DOXYCYCLINE [Suspect]
     Dates: start: 20050428, end: 20050501
  2. KETEK [Suspect]
     Dates: start: 20050411, end: 20050415

REACTIONS (13)
  - ASCITES [None]
  - COAGULOPATHY [None]
  - EOSINOPHILIA [None]
  - FLUID RETENTION [None]
  - HEADACHE [None]
  - JAUNDICE [None]
  - LIVER DISORDER [None]
  - MALAISE [None]
  - PAIN [None]
  - PYREXIA [None]
  - SPLENOMEGALY [None]
  - TRANSAMINASES INCREASED [None]
  - VIRAL INFECTION [None]
